FAERS Safety Report 8387757-2 (Version None)
Quarter: 2012Q2

REPORT INFORMATION
  Report Type: 
  Country: None (occurrence: None)
  Receive Date: 20120525
  Receipt Date: 20120430
  Transmission Date: 20120825
  Serious: Yes (Hospitalization)
  Sender: FDA-Public Use
  Company Number: CA-GLAXOSMITHKLINE-A0975781A

PATIENT
  Sex: Female
  Weight: 62.3 kg

DRUGS (4)
  1. TILAZEM [Concomitant]
  2. ADVAIR DISKUS 100/50 [Suspect]
     Indication: CHRONIC OBSTRUCTIVE PULMONARY DISEASE
     Dosage: 1PUFF TWICE PER DAY
     Route: 055
     Dates: start: 20120301
  3. ALBUTEROL [Concomitant]
  4. SPIRIVA [Concomitant]

REACTIONS (2)
  - DYSPNOEA [None]
  - INFECTION [None]
